FAERS Safety Report 5141341-2 (Version None)
Quarter: 2006Q4

REPORT INFORMATION
  Report Type: 
  Country: None (occurrence: None)
  Receive Date: 20061030
  Receipt Date: 20061030
  Transmission Date: 20070319
  Serious: No
  Sender: FDA-Public Use
  Company Number: None

PATIENT

DRUGS (2)
  1. LIORESAL [Suspect]
     Dosage: INJECTABLE
  2. MORPHINE SULFATE [Suspect]
     Dosage: INJECTABLE

REACTIONS (7)
  - DEPRESSED LEVEL OF CONSCIOUSNESS [None]
  - DRUG DISPENSING ERROR [None]
  - INCORRECT DOSE ADMINISTERED [None]
  - INCORRECT DRUG ADMINISTRATION RATE [None]
  - MEDICATION ERROR [None]
  - NONSPECIFIC REACTION [None]
  - OVERDOSE [None]
